FAERS Safety Report 6479976-7 (Version None)
Quarter: 2009Q4

REPORT INFORMATION
  Report Type: 
  Country: None (occurrence: None)
  Receive Date: 20091208
  Receipt Date: 20091127
  Transmission Date: 20100525
  Serious: Yes (Death)
  Sender: FDA-Public Use
  Company Number: FR-SANOFI-AVENTIS-2009SA004949

PATIENT
  Age: 78 Year
  Sex: Female

DRUGS (10)
  1. TRIATEC [Suspect]
     Route: 048
     Dates: start: 20090403, end: 20091007
  2. CORDARONE [Suspect]
     Indication: ATRIAL FIBRILLATION
     Route: 048
     Dates: start: 19941101, end: 20091027
  3. LASILIX [Suspect]
     Route: 048
     Dates: start: 20080101, end: 20091007
  4. SPECIAFOLDINE [Suspect]
     Dosage: DOSE:1 UNIT(S)
     Route: 048
     Dates: end: 20091007
  5. LANTUS [Suspect]
     Route: 065
     Dates: start: 20040101, end: 20091024
  6. AUGMENTIN '125' [Suspect]
     Indication: ERYSIPELAS
     Route: 048
     Dates: start: 20090804, end: 20091007
  7. NEXIUM /UNK/ [Suspect]
     Indication: GASTRITIS
     Route: 048
     Dates: start: 20080801, end: 20091027
  8. PREVISCAN [Suspect]
     Indication: ATRIAL FIBRILLATION
     Route: 048
     Dates: start: 19930101, end: 20091027
  9. DAFALGAN [Suspect]
     Indication: ANALGESIC THERAPY
     Route: 048
     Dates: start: 19900101, end: 20091007
  10. TEMESTA [Suspect]
     Indication: ANXIETY
     Dosage: DOSE:1 UNIT(S)
     Route: 048
     Dates: start: 19910101, end: 20091007

REACTIONS (7)
  - CARDIAC FAILURE [None]
  - CLOSTRIDIUM DIFFICILE COLITIS [None]
  - CONDITION AGGRAVATED [None]
  - DEHYDRATION [None]
  - HYPONATRAEMIA [None]
  - RENAL FAILURE ACUTE [None]
  - VOMITING [None]
